FAERS Safety Report 25788167 (Version 1)
Quarter: 2025Q3

REPORT INFORMATION
  Report Type: Spontaneous
  Country: EU (occurrence: EU)
  Receive Date: 20250910
  Receipt Date: 20250910
  Transmission Date: 20251021
  Serious: Yes (Other)
  Sender: ALIMERA
  Company Number: EU-ALIMERA SCIENCES EUROPE LIMITED-FR-A16013-25-000291

PATIENT

DRUGS (1)
  1. ILUVIEN [Suspect]
     Active Substance: FLUOCINOLONE ACETONIDE
     Indication: Diabetic retinal oedema
     Dosage: 0.25 MICROGRAM, QD
     Route: 031
     Dates: start: 20250801, end: 20250801

REACTIONS (2)
  - Open globe injury [Unknown]
  - Product administration error [Unknown]

NARRATIVE: CASE EVENT DATE: 20250801
